FAERS Safety Report 19358452 (Version 3)
Quarter: 2021Q4

REPORT INFORMATION
  Report Type: Report from Study
  Country: KR (occurrence: KR)
  Receive Date: 20210531
  Receipt Date: 20211115
  Transmission Date: 20220303
  Serious: Yes (Death, Hospitalization, Other)
  Sender: FDA-Public Use
  Company Number: KR-KYOWAKIRIN-2021AKK008943

PATIENT
  Age: 56 Year
  Sex: Male

DRUGS (59)
  1. FILGRASTIM [Suspect]
     Active Substance: FILGRASTIM
     Indication: Product used for unknown indication
     Dosage: UNK
     Route: 065
     Dates: start: 20110512, end: 20110516
  2. FILGRASTIM [Suspect]
     Active Substance: FILGRASTIM
     Dosage: UNK
     Route: 065
     Dates: start: 20110628, end: 20110705
  3. FILGRASTIM [Suspect]
     Active Substance: FILGRASTIM
     Dosage: UNK
     Route: 065
     Dates: start: 20120502, end: 20120508
  4. FILGRASTIM [Suspect]
     Active Substance: FILGRASTIM
     Dosage: UNK
     Route: 065
     Dates: start: 20120625, end: 20120628
  5. FILGRASTIM [Suspect]
     Active Substance: FILGRASTIM
     Dosage: UNK
     Route: 065
     Dates: start: 20120808, end: 20120808
  6. FILGRASTIM [Suspect]
     Active Substance: FILGRASTIM
     Dosage: UNK
     Route: 065
     Dates: start: 20121004, end: 20121005
  7. FILGRASTIM [Suspect]
     Active Substance: FILGRASTIM
     Dosage: UNK
     Route: 065
     Dates: start: 20121012, end: 20121012
  8. FILGRASTIM [Suspect]
     Active Substance: FILGRASTIM
     Dosage: UNK
     Route: 065
     Dates: start: 20110512, end: 20110516
  9. FILGRASTIM [Suspect]
     Active Substance: FILGRASTIM
     Dosage: UNK
     Route: 065
     Dates: start: 20110628, end: 20110705
  10. FILGRASTIM [Suspect]
     Active Substance: FILGRASTIM
     Dosage: UNK
     Route: 065
     Dates: start: 20120502, end: 20120508
  11. FILGRASTIM [Suspect]
     Active Substance: FILGRASTIM
     Dosage: UNK
     Route: 065
     Dates: start: 20120625, end: 20120628
  12. FILGRASTIM [Suspect]
     Active Substance: FILGRASTIM
     Dosage: UNK
     Route: 065
     Dates: start: 20120808, end: 20120808
  13. FILGRASTIM [Suspect]
     Active Substance: FILGRASTIM
     Dosage: UNK
     Route: 065
     Dates: start: 20121004, end: 20121005
  14. DECITABINE [Concomitant]
     Active Substance: DECITABINE
     Indication: Product used for unknown indication
     Dosage: 20 UNK
     Dates: start: 20110419, end: 20110423
  15. DECITABINE [Concomitant]
     Active Substance: DECITABINE
     Dosage: 20 UNK
     Dates: start: 20110419, end: 20110423
  16. DECITABINE [Concomitant]
     Active Substance: DECITABINE
     Dosage: 20 UNK
     Dates: start: 20110610, end: 20110614
  17. DECITABINE [Concomitant]
     Active Substance: DECITABINE
     Dosage: 20 UNK
     Dates: start: 20110610, end: 20110614
  18. DECITABINE [Concomitant]
     Active Substance: DECITABINE
     Dosage: 20 UNK
     Dates: start: 20110725, end: 20110729
  19. DECITABINE [Concomitant]
     Active Substance: DECITABINE
     Dosage: 20 UNK
     Dates: start: 20110725, end: 20110729
  20. DECITABINE [Concomitant]
     Active Substance: DECITABINE
     Dosage: 20 UNK
     Dates: start: 20110905, end: 20110909
  21. DECITABINE [Concomitant]
     Active Substance: DECITABINE
     Dosage: 20 UNK
     Dates: start: 20110905, end: 20110909
  22. DECITABINE [Concomitant]
     Active Substance: DECITABINE
     Dosage: 20 UNK
     Dates: start: 20111017, end: 20111021
  23. DECITABINE [Concomitant]
     Active Substance: DECITABINE
     Dosage: 20 UNK
     Dates: start: 20111017, end: 20111021
  24. DECITABINE [Concomitant]
     Active Substance: DECITABINE
     Dosage: 20 UNK
     Dates: start: 20111205, end: 20111209
  25. DECITABINE [Concomitant]
     Active Substance: DECITABINE
     Dosage: 20 UNK
     Dates: start: 20111205, end: 20111209
  26. DECITABINE [Concomitant]
     Active Substance: DECITABINE
     Dosage: 20 UNK
     Dates: start: 20120414, end: 20120418
  27. DECITABINE [Concomitant]
     Active Substance: DECITABINE
     Dosage: 20 UNK
     Dates: start: 20120414, end: 20120418
  28. DECITABINE [Concomitant]
     Active Substance: DECITABINE
     Dosage: 20 UNK
     Dates: start: 20120603, end: 20120607
  29. DECITABINE [Concomitant]
     Active Substance: DECITABINE
     Dosage: 20 UNK
     Dates: start: 20120603, end: 20120607
  30. DECITABINE [Concomitant]
     Active Substance: DECITABINE
     Dosage: 20 UNK
     Dates: start: 20120721, end: 20120725
  31. DECITABINE [Concomitant]
     Active Substance: DECITABINE
     Dosage: 20 UNK
     Dates: start: 20120721, end: 20120725
  32. DECITABINE [Concomitant]
     Active Substance: DECITABINE
     Dosage: 20 UNK
     Dates: start: 20120917, end: 20120921
  33. DECITABINE [Concomitant]
     Active Substance: DECITABINE
     Dosage: 20 UNK
     Dates: start: 20120917, end: 20120921
  34. DECITABINE [Concomitant]
     Active Substance: DECITABINE
     Dosage: 20 UNK
     Dates: start: 20121109, end: 20121113
  35. DECITABINE [Concomitant]
     Active Substance: DECITABINE
     Dosage: 20 UNK
     Dates: start: 20121109, end: 20121113
  36. DECITABINE [Concomitant]
     Active Substance: DECITABINE
     Dosage: 20 UNK
     Dates: start: 20121227, end: 20121231
  37. DECITABINE [Concomitant]
     Active Substance: DECITABINE
     Dosage: 20 UNK
     Dates: start: 20121227, end: 20121231
  38. CEFDITOREN [Concomitant]
     Active Substance: CEFDITOREN
     Indication: Product used for unknown indication
     Dosage: 300 MILLIGRAM
     Dates: start: 20111114, end: 20111123
  39. CEFDITOREN [Concomitant]
     Active Substance: CEFDITOREN
     Dosage: 300 MILLIGRAM
     Dates: start: 20120208, end: 20120220
  40. CEFPIROME [Concomitant]
     Active Substance: CEFPIROME
     Indication: Product used for unknown indication
     Dosage: 10 MILLIGRAM
     Dates: start: 20110512, end: 20110530
  41. CEFPIROME [Concomitant]
     Active Substance: CEFPIROME
     Dosage: 1 UNK
     Dates: start: 20110704, end: 20110707
  42. CEFPIROME [Concomitant]
     Active Substance: CEFPIROME
     Dosage: 1 UNK
     Dates: start: 20110711, end: 20110719
  43. CEFPIROME [Concomitant]
     Active Substance: CEFPIROME
     Dosage: 1 UNK
     Dates: start: 20110812, end: 20110902
  44. CEFPIROME [Concomitant]
     Active Substance: CEFPIROME
     Dosage: 4 UNK
     Dates: start: 20110512, end: 20110530
  45. CEFPIROME [Concomitant]
     Active Substance: CEFPIROME
     Dosage: 4 UNK
     Dates: start: 20110704, end: 20110707
  46. CEFPIROME [Concomitant]
     Active Substance: CEFPIROME
     Dosage: 4 UNK
     Dates: start: 20110711, end: 20110719
  47. CEFPIROME [Concomitant]
     Active Substance: CEFPIROME
     Dosage: 4 UNK
     Dates: start: 20110812, end: 20110902
  48. CEFPIROME [Concomitant]
     Active Substance: CEFPIROME
     Dosage: 10 MILLIGRAM
     Dates: start: 20110512, end: 20110530
  49. CEFPIROME [Concomitant]
     Active Substance: CEFPIROME
     Dosage: 10 MILLIGRAM
     Dates: start: 20110704, end: 20110707
  50. CEFPIROME [Concomitant]
     Active Substance: CEFPIROME
     Dosage: 10 MILLIGRAM
     Dates: start: 20110711, end: 20110719
  51. CEFPIROME [Concomitant]
     Active Substance: CEFPIROME
     Dosage: 10 MILLIGRAM
     Dates: start: 20110812, end: 20110902
  52. ITRACONAZOLE [Concomitant]
     Active Substance: ITRACONAZOLE
     Indication: Product used for unknown indication
     Dosage: 40 UNK
     Dates: start: 20110823, end: 20110829
  53. ITRACONAZOLE [Concomitant]
     Active Substance: ITRACONAZOLE
     Dosage: 40 UNK
     Dates: start: 20110928, end: 20110930
  54. LENOGRASTIM [Concomitant]
     Active Substance: LENOGRASTIM
     Indication: Product used for unknown indication
     Dosage: 250 UNK
     Dates: start: 20110425, end: 20110511
  55. LENOGRASTIM [Concomitant]
     Active Substance: LENOGRASTIM
     Dosage: 250 UNK
     Dates: start: 20110926, end: 20110930
  56. LENOGRASTIM [Concomitant]
     Active Substance: LENOGRASTIM
     Dosage: 250 UNK
     Dates: start: 20111107, end: 20111107
  57. LENOGRASTIM [Concomitant]
     Active Substance: LENOGRASTIM
     Dosage: 250 UNK
     Dates: start: 20111109, end: 20111109
  58. LENOGRASTIM [Concomitant]
     Active Substance: LENOGRASTIM
     Dosage: 250 UNK
     Dates: start: 20111228, end: 20111228
  59. LENOGRASTIM [Concomitant]
     Active Substance: LENOGRASTIM
     Dosage: 250 UNK
     Dates: start: 20111230, end: 20111230

REACTIONS (2)
  - Muscle abscess [Not Recovered/Not Resolved]
  - Sepsis [Fatal]

NARRATIVE: CASE EVENT DATE: 20130111
